FAERS Safety Report 5294706-2 (Version None)
Quarter: 2007Q2

REPORT INFORMATION
  Report Type: 
  Country: None (occurrence: None)
  Receive Date: 20070412
  Receipt Date: 20070405
  Transmission Date: 20071010
  Serious: Yes (Hospitalization)
  Sender: FDA-Public Use
  Company Number: HQWYE936309APR07

PATIENT
  Age: 40 Year
  Sex: Female

DRUGS (1)
  1. PREMPRO [Suspect]
     Indication: DEPRESSION
     Dosage: 0.625/5MG, FREQUENCY NOT PROVIDED
     Route: 048
     Dates: start: 19920101

REACTIONS (1)
  - BENIGN UTERINE NEOPLASM [None]
